FAERS Safety Report 22363675 (Version 1)
Quarter: 2023Q2

REPORT INFORMATION
  Report Type: Spontaneous
  Country: ES (occurrence: ES)
  Receive Date: 20230525
  Receipt Date: 20230525
  Transmission Date: 20230722
  Serious: Yes (Life-Threatening, Hospitalization)
  Sender: FDA-Public Use
  Company Number: None

PATIENT
  Age: 68 Year
  Sex: Male
  Weight: 60 kg

DRUGS (5)
  1. DOCETAXEL [Suspect]
     Active Substance: DOCETAXEL
     Indication: Prostate cancer stage IV
     Dosage: 121 MG SINGLE TWO   , DOCETAXEL (7394A)
     Dates: start: 20230419, end: 20230419
  2. PREDNISONE [Concomitant]
     Active Substance: PREDNISONE
     Indication: Prostate cancer stage IV
     Dosage: 5MG DAILY + EXTRA DOSE 10MG ON 04/19   , PREDNISONA (886A)
     Dates: start: 20230314
  3. ONDANSETRON [Concomitant]
     Active Substance: ONDANSETRON
     Indication: Product used for unknown indication
     Dosage: 8MG SINGLE DOSE
     Dates: start: 20230419, end: 20230419
  4. ABIRATERONE [Concomitant]
     Active Substance: ABIRATERONE
     Indication: Prostate cancer stage IV
     Dosage: 1000 MILLIGRAM DAILY;  1000MG A DAY  , ABIRATERONA (8349A)
     Dates: start: 20230314
  5. POLARAMINE [Concomitant]
     Active Substance: DEXCHLORPHENIRAMINE MALEATE
     Indication: Product used for unknown indication
     Dosage: 5 MG SINGLE DOSE , 5 AMPOULES OF 1 ML
     Dates: start: 20230419, end: 20230419

REACTIONS (2)
  - Agranulocytosis [Recovered/Resolved]
  - Mucosal inflammation [Recovering/Resolving]

NARRATIVE: CASE EVENT DATE: 20230426
